FAERS Safety Report 4450364-8 (Version None)
Quarter: 2004Q3

REPORT INFORMATION
  Report Type: 
  Country: None (occurrence: None)
  Receive Date: 20040915
  Receipt Date: 20040901
  Transmission Date: 20050211
  Serious: Yes (Hospitalization)
  Sender: FDA-Public Use
  Company Number: US-MERCK-0409USA00226

PATIENT
  Age: 57 Year
  Sex: Female

DRUGS (6)
  1. ALPHAGAN [Concomitant]
     Route: 065
  2. XALATAN [Concomitant]
     Route: 065
  3. SINGULAIR [Suspect]
     Indication: ASTHMA
     Route: 048
     Dates: start: 20030707, end: 20040826
  4. AVELOX [Concomitant]
     Route: 065
  5. ACTONEL [Concomitant]
     Route: 065
  6. DIOVAN [Concomitant]
     Route: 065

REACTIONS (1)
  - ALLERGIC GRANULOMATOUS ANGIITIS [None]
